FAERS Safety Report 24433602 (Version 1)
Quarter: 2024Q4

REPORT INFORMATION
  Report Type: Spontaneous
  Country: US (occurrence: US)
  Receive Date: 20241014
  Receipt Date: 20241014
  Transmission Date: 20250114
  Serious: No
  Sender: SPROUT PHARMACEUTICALS, INC.
  Company Number: US-Sprout Pharmaceuticals, Inc.-2023SP000348

PATIENT
  Age: 67 Year
  Sex: Female

DRUGS (1)
  1. ADDYI [Suspect]
     Active Substance: FLIBANSERIN
     Indication: Product used for unknown indication
     Dosage: RX # 6754254?STARTED TAKING 1/4 OF A PILL AND TAPERED UP TO WHOLE PILL
     Route: 048
     Dates: start: 2023, end: 202311

REACTIONS (2)
  - Insomnia [Recovered/Resolved]
  - Intentional product use issue [Recovered/Resolved]

NARRATIVE: CASE EVENT DATE: 20230101
